FAERS Safety Report 4316233-9 (Version None)
Quarter: 2004Q1

REPORT INFORMATION
  Report Type: 
  Country: None (occurrence: None)
  Receive Date: 20040312
  Receipt Date: 20031210
  Transmission Date: 20041129
  Serious: Yes (Other)
  Sender: FDA-Public Use
  Company Number: FR-ROCHE-353856

PATIENT
  Age: 59 Year
  Sex: Female
  Weight: 48 kg

DRUGS (4)
  1. SORIATANE [Suspect]
     Indication: PSORIASIS
     Route: 048
     Dates: start: 20000615
  2. SORIATANE [Suspect]
     Dosage: IT WAS REPORTED THAT SORIATANE DOSAGE WAS REDUCED AFTER THE PATIENT EXPERIENCED INCREASED AMYLASE.
     Route: 048
  3. EXTENCILLINE [Concomitant]
     Indication: ERYSIPELAS
  4. DIPROSONE [Concomitant]

REACTIONS (1)
  - BLOOD AMYLASE INCREASED [None]
